FAERS Safety Report 19571224 (Version 1)
Quarter: 2021Q3

REPORT INFORMATION
  Report Type: Spontaneous
  Country: FI (occurrence: FI)
  Receive Date: 20210716
  Receipt Date: 20210716
  Transmission Date: 20211014
  Serious: Yes (Hospitalization)
  Sender: FDA-Public Use
  Company Number: FI-ASTRAZENECA-2021A612418

PATIENT
  Age: 56 Year
  Sex: Female

DRUGS (2)
  1. FORXIGA [Suspect]
     Active Substance: DAPAGLIFLOZIN
     Indication: CHRONIC KIDNEY DISEASE
     Route: 048
     Dates: start: 202102, end: 202107
  2. FUROSEMIDE. [Interacting]
     Active Substance: FUROSEMIDE
     Indication: DIURETIC THERAPY
     Route: 065

REACTIONS (6)
  - Blood creatinine increased [Recovering/Resolving]
  - Hypotonia [Recovering/Resolving]
  - Hypovolaemia [Recovering/Resolving]
  - Off label use [Recovering/Resolving]
  - Drug interaction [Recovering/Resolving]
  - Glomerular filtration rate decreased [Recovering/Resolving]

NARRATIVE: CASE EVENT DATE: 202102
